FAERS Safety Report 6269759-5 (Version None)
Quarter: 2009Q3

REPORT INFORMATION
  Report Type: 
  Country: None (occurrence: None)
  Receive Date: 20090716
  Receipt Date: 20090709
  Transmission Date: 20100115
  Serious: Yes (Other)
  Sender: FDA-Public Use
  Company Number: JP-JNJFOC-20090603671

PATIENT
  Sex: Male
  Weight: 52 kg

DRUGS (14)
  1. DUROTEP MT [Suspect]
     Route: 062
  2. DUROTEP MT [Suspect]
     Indication: CANCER PAIN
     Route: 062
  3. OXYCONTIN [Suspect]
     Indication: DRUG USE FOR UNKNOWN INDICATION
     Route: 048
  4. DIOVAN [Suspect]
     Indication: DRUG USE FOR UNKNOWN INDICATION
     Route: 048
  5. IRESSA [Concomitant]
     Indication: LUNG ADENOCARCINOMA
     Route: 048
  6. NORVASC [Concomitant]
     Indication: HYPERTENSION
     Route: 048
  7. MEVALOTIN [Concomitant]
     Indication: HYPERCHOLESTEROLAEMIA
     Route: 048
  8. PANALDINE [Concomitant]
     Indication: CAROTID ARTERIOSCLEROSIS
     Route: 048
  9. ALOSITOL [Concomitant]
     Indication: HYPERURICAEMIA
     Route: 048
  10. MOBIC [Concomitant]
     Indication: CANCER PAIN
     Route: 048
  11. CYTOTEC [Concomitant]
     Indication: GASTRITIS
     Route: 048
  12. HARNAL [Concomitant]
     Indication: BENIGN PROSTATIC HYPERPLASIA
     Route: 048
  13. ASPIRIN [Concomitant]
     Indication: CAROTID ARTERIOSCLEROSIS
     Route: 048
  14. ARTIST [Concomitant]
     Indication: HYPERTENSION
     Route: 048

REACTIONS (3)
  - BLOOD AMYLASE INCREASED [None]
  - DECREASED APPETITE [None]
  - INADEQUATE ANALGESIA [None]
